FAERS Safety Report 8484669-0 (Version None)
Quarter: 2012Q3

REPORT INFORMATION
  Report Type: 
  Country: None (occurrence: None)
  Receive Date: 20120703
  Receipt Date: 20120530
  Transmission Date: 20120928
  Serious: Yes (Other)
  Sender: FDA-Public Use
  Company Number: US-TEVA-332997USA

PATIENT
  Sex: Female
  Weight: 52.21 kg

DRUGS (6)
  1. NUVIGIL [Suspect]
     Indication: DISTURBANCE IN ATTENTION
  2. DULOXETINE HYDROCHLORIDE [Concomitant]
     Indication: ANXIETY
  3. ACETAMINOPHEN [Concomitant]
     Route: 048
  4. DULOXETINE HYDROCHLORIDE [Concomitant]
     Indication: DEPRESSION
     Dosage: 60 MILLIGRAM;
     Route: 048
  5. NORLESTRIN FE [Concomitant]
     Indication: CONTRACEPTION
     Route: 048
     Dates: start: 20110101
  6. NUVIGIL [Suspect]
     Indication: SLEEP DISORDER
     Dosage: 150 MILLIGRAM;
     Route: 048
     Dates: end: 20120222

REACTIONS (7)
  - DYSPNOEA [None]
  - SWELLING FACE [None]
  - PRURITUS GENERALISED [None]
  - PHARYNGEAL OEDEMA [None]
  - OEDEMA PERIPHERAL [None]
  - ANAPHYLACTIC SHOCK [None]
  - OFF LABEL USE [None]
